FAERS Safety Report 4407967-6 (Version None)
Quarter: 2004Q3

REPORT INFORMATION
  Report Type: 
  Country: None (occurrence: None)
  Receive Date: 20040716
  Receipt Date: 20040706
  Transmission Date: 20050211
  Serious: Yes (Disabling)
  Sender: FDA-Public Use
  Company Number: 04P-062-0263843-00

PATIENT
  Sex: Female

DRUGS (1)
  1. MERIDIA [Suspect]
     Dosage: PER ORAL
     Route: 048

REACTIONS (1)
  - NO ADVERSE EFFECT [None]
